FAERS Safety Report 6683007-3 (Version None)
Quarter: 2010Q2

REPORT INFORMATION
  Report Type: 
  Country: None (occurrence: None)
  Receive Date: 20100413
  Receipt Date: 20100330
  Transmission Date: 20101027
  Serious: Yes (Life-Threatening, Hospitalization)
  Sender: FDA-Public Use
  Company Number: 2010AL002066

PATIENT
  Age: 62 Year
  Sex: Male

DRUGS (9)
  1. IBUPROFEN [Suspect]
     Indication: PAIN
     Dosage: 1 DF, PRN
     Dates: start: 20090701, end: 20100111
  2. OXYCONTIN [Concomitant]
  3. OXYCODONE HCL [Concomitant]
  4. ALOPAM [Concomitant]
  5. IMOCLONE [Concomitant]
  6. CERTICAN [Concomitant]
  7. OLMESARTAN MEDOXOMIL [Concomitant]
  8. CENTYL [Concomitant]
  9. PANTOPRAZOLE [Concomitant]

REACTIONS (5)
  - BLOOD UREA DECREASED [None]
  - DRUG INTERACTION [None]
  - HAEMOGLOBIN DECREASED [None]
  - METABOLIC ACIDOSIS [None]
  - RENAL FAILURE [None]
